FAERS Safety Report 9564276 (Version 3)
Quarter: 2014Q1

REPORT INFORMATION
  Report Type: Spontaneous
  Country: US (occurrence: US)
  Receive Date: 20130930
  Receipt Date: 20140224
  Transmission Date: 20141002
  Serious: Yes (Other)
  Sender: FDA-Public Use
  Company Number: US-AMGEN-USASP2013067170

PATIENT
  Age: 82 Year
  Sex: Female
  Weight: 57.6 kg

DRUGS (5)
  1. PROLIA [Suspect]
     Indication: OSTEOPOROSIS POSTMENOPAUSAL
     Dosage: 60 MG, UNK
     Route: 058
     Dates: start: 20120125
  2. WELCHOL [Concomitant]
  3. VITAMIN C                          /00008001/ [Concomitant]
  4. BABY ASPIRIN [Concomitant]
  5. VITAMIN D                          /00107901/ [Concomitant]

REACTIONS (9)
  - Speech disorder [Recovered/Resolved]
  - Drooling [Recovered/Resolved]
  - Jaw disorder [Recovered/Resolved]
  - Muscle tightness [Recovered/Resolved]
  - Trismus [Recovered/Resolved]
  - Dysphagia [Unknown]
  - Eating disorder [Unknown]
  - Weight decreased [Unknown]
  - Depressed mood [Unknown]
